FAERS Safety Report 5903679-8 (Version None)
Quarter: 2008Q3

REPORT INFORMATION
  Report Type: 
  Country: None (occurrence: None)
  Receive Date: 20080919
  Receipt Date: 20080808
  Transmission Date: 20090109
  Serious: No
  Sender: FDA-Public Use
  Company Number: US-WYE-H05469908

PATIENT
  Age: 54 Year
  Sex: Female

DRUGS (2)
  1. PRISTIQ [Suspect]
     Indication: ATTENTION DEFICIT/HYPERACTIVITY DISORDER
     Dosage: 50 MG 1X PER 1 DAY, ORAL
     Route: 048
     Dates: start: 20080701, end: 20080807
  2. ACTOS [Concomitant]

REACTIONS (7)
  - HALLUCINATION [None]
  - INSOMNIA [None]
  - MANIA [None]
  - MEMORY IMPAIRMENT [None]
  - REPETITIVE SPEECH [None]
  - RESTLESSNESS [None]
  - THINKING ABNORMAL [None]
